FAERS Safety Report 12665550 (Version 1)
Quarter: 2016Q3

REPORT INFORMATION
  Report Type: Spontaneous
  Country: US (occurrence: US)
  Receive Date: 20160818
  Receipt Date: 20160818
  Transmission Date: 20161109
  Serious: No
  Sender: FDA-Public Use
  Company Number: US-FRI-1000085487

PATIENT
  Sex: Female

DRUGS (1)
  1. CELEXA [Suspect]
     Active Substance: CITALOPRAM HYDROBROMIDE

REACTIONS (7)
  - Mobility decreased [Unknown]
  - Unevaluable event [Unknown]
  - Depression [Unknown]
  - Apathy [Unknown]
  - Crying [Unknown]
  - Depressed mood [Unknown]
  - Malaise [Unknown]

NARRATIVE: CASE EVENT DATE: 201604
